FAERS Safety Report 11227953 (Version 2)
Quarter: 2015Q3

REPORT INFORMATION
  Report Type: Spontaneous
  Country: AU (occurrence: AU)
  Receive Date: 20150630
  Receipt Date: 20150715
  Transmission Date: 20151125
  Serious: Yes (Death, Other)
  Sender: FDA-Public Use
  Company Number: AU-ALLERGAN-1512092US

PATIENT
  Age: 82 Year
  Sex: Female

DRUGS (4)
  1. TIMOLOL MALEATE 0.5% SOL [Suspect]
     Active Substance: TIMOLOL MALEATE
     Indication: PRODUCT USED FOR UNKNOWN INDICATION
     Route: 047
  2. PROPINE [Suspect]
     Active Substance: DIPIVEFRIN HYDROCHLORIDE
     Indication: PRODUCT USED FOR UNKNOWN INDICATION
     Route: 047
  3. MACRODANTIN [Suspect]
     Active Substance: NITROFURANTOIN
     Indication: URINARY TRACT DISORDER
     Dosage: 200 MG, QD
     Dates: start: 19920410, end: 19920513
  4. THYROXINE SODIUM [Concomitant]
     Active Substance: LEVOTHYROXINE SODIUM
     Indication: PRODUCT USED FOR UNKNOWN INDICATION
     Dosage: 100 ?G, QD
     Route: 048
     Dates: start: 19880101

REACTIONS (3)
  - Pulmonary fibrosis [Fatal]
  - Dyspnoea [Fatal]
  - Respiratory failure [Fatal]
